FAERS Safety Report 22288509 (Version 1)
Quarter: 2023Q2

REPORT INFORMATION
  Report Type: Spontaneous
  Country: US (occurrence: US)
  Receive Date: 20230505
  Receipt Date: 20230505
  Transmission Date: 20230721
  Serious: Yes (Other)
  Sender: FDA-Public Use
  Company Number: US-PFIZER INC-202300176483

PATIENT
  Age: 72 Year
  Sex: Female

DRUGS (3)
  1. ACCUPRIL [Suspect]
     Active Substance: QUINAPRIL HYDROCHLORIDE
     Indication: Hypertension
     Dosage: 20 MG, DAILY
     Route: 048
     Dates: start: 1997
  2. ACCUPRIL [Suspect]
     Active Substance: QUINAPRIL HYDROCHLORIDE
     Dosage: 40 MG
  3. ACCUPRIL [Suspect]
     Active Substance: QUINAPRIL HYDROCHLORIDE
     Dosage: 20 MG

REACTIONS (5)
  - Hip arthroplasty [Unknown]
  - Weight decreased [Unknown]
  - Fall [Unknown]
  - Lip swelling [Unknown]
  - Abdominal discomfort [Unknown]

NARRATIVE: CASE EVENT DATE: 20220101
